FAERS Safety Report 23097397 (Version 1)
Quarter: 2023Q4

REPORT INFORMATION
  Report Type: Spontaneous
  Country: US (occurrence: None)
  Receive Date: 20231023
  Receipt Date: 20231023
  Transmission Date: 20240110
  Serious: Yes (Death)
  Sender: FDA-Public Use
  Company Number: None

PATIENT
  Age: 52 Year
  Sex: Male
  Weight: 116.46 kg

DRUGS (2)
  1. PROMACTA [Suspect]
     Active Substance: ELTROMBOPAG OLAMINE
     Indication: Chronic lymphocytic leukaemia
     Dosage: FREQUENCY : DAILY;?
     Route: 048
     Dates: start: 20221109, end: 20231013
  2. CALQUENCE [Concomitant]
     Active Substance: ACALABRUTINIB
     Dates: start: 20230313, end: 20231013

REACTIONS (1)
  - Death [None]

NARRATIVE: CASE EVENT DATE: 20231013
